FAERS Safety Report 10078358 (Version 1)
Quarter: 2014Q1

REPORT INFORMATION
  Report Type: Spontaneous
  Country: TW (occurrence: None)
  Receive Date: 20140326
  Receipt Date: 20140326
  Transmission Date: 20141002
  Serious: Yes (Hospitalization)
  Sender: FDA-Public Use
  Company Number: JP-2013-16281

PATIENT
  Age: 58 Year
  Sex: Male
  Weight: 65.3 kg

DRUGS (35)
  1. TOLVAPTAN [Suspect]
     Indication: OEDEMA DUE TO CARDIAC DISEASE
     Route: 048
     Dates: start: 20131111, end: 20131114
  2. APRESOLINE (HYDRALAZINE HYDROCHLORIDE) [Concomitant]
  3. INSULIN ACTRAPID (INSULIN HUMAN) [Concomitant]
  4. URINORM (BENZBROMARONE) [Concomitant]
  5. SORBITRATE (ISOSORBIDE DINITRATE) [Concomitant]
  6. CRESTOR (ROSUVASTATIN CALCIUM) [Concomitant]
  7. ACTEIN (ACETYLCYSTEINE) [Concomitant]
  8. GLUCOBAY (ACARBOSE) [Concomitant]
  9. ALDACTONE (SPIRONOLACTONE) [Concomitant]
  10. SENNAPUR (SENNOSIDE A+B CALCIUM) [Concomitant]
  11. COUGH MIXTURE A (PLATYCODON GRANDIFLORUM) [Concomitant]
  12. NOVONORM (REPAGLINIDE) [Concomitant]
  13. JANUVIA (SITAGLIPTIN PHOSPHATE) [Concomitant]
  14. SANCOBA (CYANOCOBALAMIN) [Concomitant]
  15. SPERSIN (BACITRACIN, NEOMYCIN SULFATE, POLYMYXIN B SULFATE) OINTMENT [Concomitant]
  16. GITOSE (GLUCOSE) [Concomitant]
  17. BOKEY (ACETYLSALICYLIC ACID) [Concomitant]
  18. MUCAINE (ALUMINIUM HYDROXIDE, MAGNESIUM HYDROXIDE, OXETACAINE) [Concomitant]
  19. KALIMATE (CALCIUM POLYSTYRENE SULFONATE) [Concomitant]
  20. MOPRIDE (MOSAPRIDE CITRATE) [Concomitant]
  21. LASIX (FUROSEMIDE) [Concomitant]
  22. CARVEDILOL (CARVEDILOL) [Concomitant]
  23. DIGOXIN (DIGOXIN) [Concomitant]
  24. MIDAZOLAM (MIDAZOLAM) [Concomitant]
  25. POTASSIUM GLUCONATE (POTASSIUM GLUCONATE) [Concomitant]
  26. HEPARINOID (MUCOPOLYSACCHARIDE POLYSULFURIC ACID ESTER) [Concomitant]
  27. MAGNESIUM OXIDE (MAGNESIUM OXIDE) [Concomitant]
  28. SODIUM CHLORIDE (SODIUM CHLORIDE) [Concomitant]
  29. DIMETHICONE (DIMETICONE) [Concomitant]
  30. DEXTROSE (GLUCOSE) [Concomitant]
  31. CALCIUM GLUCONATE (CALCIUM GLUCONATE) [Concomitant]
  32. ALCOS-ANAL (CHLORCARVACROL, OLEINATE SODIUM, POLIDOCANOL) [Concomitant]
  33. LACTULOSE (LACTULOSE) [Concomitant]
  34. PETHIDINE (PETHIDINE) [Concomitant]
  35. TRICHLORMETHIAZIDE (TRICHLORMETHIAZIDE) [Concomitant]

REACTIONS (17)
  - Cardiac failure congestive [None]
  - Aortic valve incompetence [None]
  - Pulmonary hypertension [None]
  - Pulmonary fibrosis [None]
  - Bronchiectasis [None]
  - Pneumonia [None]
  - Alanine aminotransferase increased [None]
  - Aspartate aminotransferase increased [None]
  - Renal failure acute [None]
  - Tricuspid valve incompetence [None]
  - Diabetic retinopathy [None]
  - Cataract [None]
  - Hypoalbuminaemia [None]
  - Blood glucose increased [None]
  - Cardiomegaly [None]
  - Mitral valve incompetence [None]
  - Pleural effusion [None]
